FAERS Safety Report 21187922 (Version 1)
Quarter: 2022Q3

REPORT INFORMATION
  Report Type: Report from Study
  Country: US (occurrence: US)
  Receive Date: 20220809
  Receipt Date: 20220809
  Transmission Date: 20221026
  Serious: Yes (Other)
  Sender: FDA-Public Use
  Company Number: US-GILEAD-2022-0592601

PATIENT
  Age: 56 Year
  Sex: Female

DRUGS (21)
  1. AZTREONAM LYSINE [Suspect]
     Active Substance: AZTREONAM LYSINE
     Indication: Cystic fibrosis
     Dosage: 75 MG, TID, 28/28
     Route: 055
     Dates: start: 202107
  2. MINERALS\VITAMINS [Concomitant]
     Active Substance: MINERALS\VITAMINS
  3. MIGRAINE RELIEF [Concomitant]
  4. MELATONIN [Concomitant]
     Active Substance: MELATONIN
  5. SINGULAIR [Concomitant]
     Active Substance: MONTELUKAST SODIUM
  6. ZYRTEC [Concomitant]
     Active Substance: CETIRIZINE HYDROCHLORIDE
  7. ZITHROMAX [Concomitant]
     Active Substance: AZITHROMYCIN DIHYDRATE
  8. FLOVENT [Concomitant]
     Active Substance: FLUTICASONE PROPIONATE
  9. INCRUSE ELLIPTA [Concomitant]
     Active Substance: UMECLIDINIUM BROMIDE
  10. GABAPENTIN [Concomitant]
     Active Substance: GABAPENTIN
  11. ALBUTEROL SULFATE [Concomitant]
     Active Substance: ALBUTEROL SULFATE
  12. BACLOFEN [Concomitant]
     Active Substance: BACLOFEN
  13. LEVOTHYROXINE [Concomitant]
     Active Substance: LEVOTHYROXINE
  14. AMPHOTERICIN B [Concomitant]
     Active Substance: AMPHOTERICIN B
  15. NASACORT [Concomitant]
     Active Substance: TRIAMCINOLONE ACETONIDE
  16. BACTRIM [Concomitant]
     Active Substance: SULFAMETHOXAZOLE\TRIMETHOPRIM
  17. XYLOMETAZOLINE HYDROCHLORIDE [Concomitant]
     Active Substance: XYLOMETAZOLINE HYDROCHLORIDE
  18. TYLENOL [Concomitant]
     Active Substance: ACETAMINOPHEN
  19. SODIUM CHLORIDE [Concomitant]
     Active Substance: SODIUM CHLORIDE
  20. PREVACID [Concomitant]
     Active Substance: LANSOPRAZOLE
  21. FLUOXETINE [Concomitant]
     Active Substance: FLUOXETINE HYDROCHLORIDE

REACTIONS (1)
  - Bronchiectasis [Unknown]

NARRATIVE: CASE EVENT DATE: 20220617
